FAERS Safety Report 10660394 (Version 1)
Quarter: 2014Q4

REPORT INFORMATION
  Report Type: Spontaneous
  Country: US (occurrence: US)
  Receive Date: 20141217
  Receipt Date: 20141217
  Transmission Date: 20150529
  Serious: No
  Sender: FDA-Public Use
  Company Number: US-GLAXOSMITHKLINE-A1084850A

PATIENT

DRUGS (6)
  1. HYDROMORPHONE [Concomitant]
     Active Substance: HYDROMORPHONE
  2. VOTRIENT [Suspect]
     Active Substance: PAZOPANIB HYDROCHLORIDE
     Indication: RENAL CELL CARCINOMA
     Route: 048
     Dates: start: 20140807
  3. MS CONTIN [Concomitant]
     Active Substance: MORPHINE SULFATE
  4. SENOKOT [Concomitant]
     Active Substance: SENNOSIDES
  5. RESTORIL [Concomitant]
     Active Substance: TEMAZEPAM
  6. ZOFRAN [Concomitant]
     Active Substance: ONDANSETRON HYDROCHLORIDE

REACTIONS (3)
  - Epistaxis [Recovered/Resolved]
  - Blood pressure systolic increased [Unknown]
  - Pulse abnormal [Unknown]

NARRATIVE: CASE EVENT DATE: 201408
